FAERS Safety Report 10175417 (Version 1)
Quarter: 2014Q2

REPORT INFORMATION
  Report Type: Spontaneous
  Country: US (occurrence: US)
  Receive Date: 20140515
  Receipt Date: 20140515
  Transmission Date: 20141212
  Serious: No
  Sender: FDA-Public Use
  Company Number: US-009507513-1405USA006287

PATIENT
  Age: 15 Year
  Sex: Female
  Weight: 52.15 kg

DRUGS (1)
  1. NEXPLANON [Suspect]
     Indication: CONTRACEPTION
     Dosage: 1 ROD / 3 YEARS
     Route: 059
     Dates: start: 20121212

REACTIONS (2)
  - Menometrorrhagia [Recovered/Resolved]
  - Menometrorrhagia [Not Recovered/Not Resolved]
